FAERS Safety Report 5147143-5 (Version None)
Quarter: 2006Q4

REPORT INFORMATION
  Report Type: 
  Country: None (occurrence: None)
  Receive Date: 20061103
  Receipt Date: 20061020
  Transmission Date: 20070319
  Serious: Yes (Hospitalization)
  Sender: FDA-Public Use
  Company Number: 8019364

PATIENT
  Sex: Female

DRUGS (10)
  1. KEPPRA [Suspect]
     Indication: EPILEPSY
     Dosage: 500 MG 2/D PO
     Route: 048
     Dates: start: 20060901
  2. BREVINOR [Suspect]
     Indication: CONTRACEPTION
     Dosage: PO
     Route: 048
     Dates: start: 19900101, end: 20060901
  3. VALPROATE SODIUM [Suspect]
     Indication: EPILEPSY
     Dosage: 1000 MG 2/D PO
     Route: 048
  4. HYDROCORTISONE [Concomitant]
  5. LEVOTHYROXINE SODIUM [Concomitant]
  6. GENOTROPIN [Concomitant]
  7. CALCIUM [Concomitant]
  8. FLUOXETINE [Concomitant]
  9. BENDROFLUMETHIAZIDE [Concomitant]
  10. FELOPIPINE [Concomitant]

REACTIONS (2)
  - HEPATIC ADENOMA [None]
  - TUMOUR HAEMORRHAGE [None]
